FAERS Safety Report 25901414 (Version 1)
Quarter: 2025Q4

REPORT INFORMATION
  Report Type: Spontaneous
  Country: US (occurrence: US)
  Receive Date: 20251009
  Receipt Date: 20251009
  Transmission Date: 20260117
  Serious: Yes (Death, Other)
  Sender: TAKEDA
  Company Number: US-TAKEDA-2025TUS088284

PATIENT

DRUGS (2)
  1. ARALAST NP [Suspect]
     Active Substance: .ALPHA.1-PROTEINASE INHIBITOR HUMAN
     Indication: Product used for unknown indication
     Dosage: UNK
  2. ARALAST NP [Suspect]
     Active Substance: .ALPHA.1-PROTEINASE INHIBITOR HUMAN

REACTIONS (3)
  - Cerebral haemorrhage [Fatal]
  - Accident [Unknown]
  - Fall [Unknown]
